FAERS Safety Report 9270529 (Version 2)
Quarter: 2014Q2

REPORT INFORMATION
  Report Type: Report from Study
  Country: US (occurrence: US)
  Receive Date: 20130503
  Receipt Date: 20140520
  Transmission Date: 20141212
  Serious: Yes (Other)
  Sender: FDA-Public Use
  Company Number: US-US-EMD SERONO, INC.-7208239

PATIENT
  Sex: Male

DRUGS (2)
  1. REBIF [Suspect]
     Indication: MULTIPLE SCLEROSIS
     Route: 058
     Dates: start: 20070712
  2. ALEVE [Concomitant]
     Indication: PREMEDICATION

REACTIONS (5)
  - Cataract [Recovering/Resolving]
  - Corneal disorder [Recovering/Resolving]
  - Injury associated with device [Recovered/Resolved]
  - Mobility decreased [Recovered/Resolved]
  - Visual impairment [Recovering/Resolving]
